FAERS Safety Report 10523727 (Version 1)
Quarter: 2014Q4

REPORT INFORMATION
  Report Type: Spontaneous
  Country: GB (occurrence: GB)
  Receive Date: 20141017
  Receipt Date: 20141017
  Transmission Date: 20150528
  Serious: Yes (Other)
  Sender: FDA-Public Use
  Company Number: GB-DRREDDYS-GER/UKI/14/0043583

PATIENT
  Age: 49 Year

DRUGS (8)
  1. PREDNISOLONE. [Suspect]
     Active Substance: PREDNISOLONE
     Indication: URTICARIA
  2. FEXOFENADINE [Suspect]
     Active Substance: FEXOFENADINE\FEXOFENADINE HYDROCHLORIDE
     Indication: URTICARIA
  3. CICLOSPORIN [Suspect]
     Active Substance: CYCLOSPORINE
     Indication: URTICARIA
  4. METHOTREXATE [Suspect]
     Active Substance: METHOTREXATE
     Indication: URTICARIA
  5. DAPSONE. [Suspect]
     Active Substance: DAPSONE
     Indication: URTICARIA
  6. OMALIZUMAB [Suspect]
     Active Substance: OMALIZUMAB
  7. MYCOPHENOLATE [Suspect]
     Active Substance: MYCOPHENOLIC ACID
     Indication: URTICARIA
  8. OMALIZUMAB [Suspect]
     Active Substance: OMALIZUMAB
     Indication: URTICARIA

REACTIONS (2)
  - Renal impairment [Unknown]
  - Drug ineffective [Unknown]
